FAERS Safety Report 5938173-1 (Version None)
Quarter: 2008Q4

REPORT INFORMATION
  Report Type: 
  Country: None (occurrence: None)
  Receive Date: 20081031
  Receipt Date: 20081030
  Transmission Date: 20090506
  Serious: Yes (Hospitalization)
  Sender: FDA-Public Use
  Company Number: JP-B.I. PHARMACEUTICALS,INC./RIDGEFIELD-2008-BP-16126NB

PATIENT
  Age: 70 Year
  Sex: Female

DRUGS (9)
  1. MICARDIS [Suspect]
     Dosage: 40MG
     Route: 048
  2. ACTARIT [Suspect]
     Dosage: 100MG
     Route: 048
  3. LIPITOR [Concomitant]
     Dosage: 5MG
     Route: 048
  4. BENET [Concomitant]
     Dosage: 2.5NR
     Route: 048
  5. AMLODIPINE BESYLATE [Concomitant]
     Dosage: 2.5MG
     Route: 048
  6. PREDONINE [Concomitant]
     Dosage: 2.5MG
     Route: 048
  7. ONEALFA [Concomitant]
     Dosage: 1MCG
     Route: 048
  8. FERO-GRADUMET [Concomitant]
     Dosage: 105NR
     Route: 048
  9. SELBEX [Concomitant]
     Route: 048

REACTIONS (1)
  - STEVENS-JOHNSON SYNDROME [None]
